FAERS Safety Report 9527811 (Version 1)
Quarter: 2013Q3

REPORT INFORMATION
  Report Type: Spontaneous
  Country: NO (occurrence: None)
  Receive Date: 20130913
  Receipt Date: 20130913
  Transmission Date: 20140515
  Serious: Yes (Death, Other)
  Sender: FDA-Public Use
  Company Number: 2013257942

PATIENT
  Age: 60 Year
  Sex: Female

DRUGS (7)
  1. FRAGMIN [Suspect]
     Indication: AORTIC VALVE REPLACEMENT
     Dosage: 2500 IU IN THE MORNING 5000 IU IN THE EVENING
     Route: 058
     Dates: start: 20130626
  2. FRAGMIN [Suspect]
     Dosage: 2500 IU IN THE MORNING 5000 IU IN THE EVENING
     Route: 058
     Dates: start: 20130626
  3. REVLIMID [Suspect]
     Indication: PLASMA CELL MYELOMA
     Dosage: ALTERNATE DAYS
     Route: 048
     Dates: start: 20130612, end: 20130626
  4. OXYCONTIN (OXYCODONE HYDROCHLORIDE) [Concomitant]
  5. PARACET(PARACETAMOL) [Concomitant]
  6. OXYNORM (OXYCODONE HYDROCHLORIDE) [Concomitant]
  7. DEXAMETHASONE (DEXAMETHASONE) [Concomitant]

REACTIONS (4)
  - Drug interaction [None]
  - Abdominal wall haemorrhage [None]
  - Thrombocytopenia [None]
  - General physical health deterioration [None]
